FAERS Safety Report 4586429-X (Version None)
Quarter: 2005Q1

REPORT INFORMATION
  Report Type: 
  Country: None (occurrence: None)
  Receive Date: 20050218
  Receipt Date: 20050208
  Transmission Date: 20050727
  Serious: Yes (Other)
  Sender: FDA-Public Use
  Company Number: US-JNJFOC-20050202726

PATIENT
  Sex: Female
  Weight: 68.95 kg

DRUGS (3)
  1. REMICADE [Suspect]
     Route: 042
  2. REMICADE [Suspect]
     Indication: RHEUMATOID ARTHRITIS
     Dosage: 7 VIALS
     Route: 042
  3. ARAVA [Concomitant]

REACTIONS (2)
  - OROPHARYNGEAL NEOPLASM [None]
  - SQUAMOUS CELL CARCINOMA [None]
